FAERS Safety Report 23882135 (Version 1)
Quarter: 2024Q2

REPORT INFORMATION
  Report Type: Spontaneous
  Country: FR (occurrence: FR)
  Receive Date: 20240521
  Receipt Date: 20240521
  Transmission Date: 20240716
  Serious: Yes (Hospitalization)
  Sender: FDA-Public Use
  Company Number: None

PATIENT
  Age: 82 Year
  Sex: Female

DRUGS (7)
  1. LINEZOLID [Suspect]
     Active Substance: LINEZOLID
     Indication: Lung disorder
     Dosage: 600 MG, 2X/DAY (EVERY 12 HOURS)
     Route: 042
     Dates: start: 20240416, end: 20240423
  2. PHLOROGLUCINOL DIHYDRATE [Suspect]
     Active Substance: PHLOROGLUCINOL DIHYDRATE
     Indication: Abdominal pain
     Dosage: 80 MG
     Route: 048
     Dates: start: 20240403, end: 20240408
  3. IOMERON [Suspect]
     Active Substance: IOMEPROL
     Indication: Computerised tomogram
     Dosage: UNK
     Route: 042
     Dates: start: 20240418, end: 20240418
  4. FILGRASTIM [Suspect]
     Active Substance: FILGRASTIM
     Indication: Abdominal pain
     Dosage: 30 MIU, 1X/DAY
     Route: 042
     Dates: start: 20240416, end: 20240421
  5. TRIMEBUTINE MALEATE [Suspect]
     Active Substance: TRIMEBUTINE MALEATE
     Indication: Abdominal pain
     Dosage: 400 MG, 1X/DAY
     Route: 042
     Dates: start: 20240409, end: 20240424
  6. PHLOROGLUCINOL DIHYDRATE [Suspect]
     Active Substance: PHLOROGLUCINOL DIHYDRATE
     Indication: Abdominal pain
     Dosage: 320 MG, 1X/DAY
     Route: 042
     Dates: start: 20240409, end: 20240424
  7. PIPERACILLIN SODIUM\TAZOBACTAM SODIUM [Suspect]
     Active Substance: PIPERACILLIN SODIUM\TAZOBACTAM SODIUM
     Indication: Lung disorder
     Dosage: 4 G, 4X/DAY (EVERY 6 HOURS)
     Route: 042
     Dates: start: 20240416, end: 20240423

REACTIONS (1)
  - Rash maculo-papular [Recovering/Resolving]

NARRATIVE: CASE EVENT DATE: 20240419
